FAERS Safety Report 12792223 (Version 1)
Quarter: 2016Q3

REPORT INFORMATION
  Report Type: Spontaneous
  Country: US (occurrence: US)
  Receive Date: 20160927
  Receipt Date: 20160927
  Transmission Date: 20161109
  Serious: No
  Sender: FDA-Public Use
  Company Number: None

PATIENT
  Age: 74 Year
  Sex: Female
  Weight: 170 kg

DRUGS (24)
  1. MAGNESIUM [Concomitant]
     Active Substance: MAGNESIUM
  2. VITAMIN B6 [Concomitant]
     Active Substance: PYRIDOXINE HYDROCHLORIDE
  3. ENBREL [Concomitant]
     Active Substance: ETANERCEPT
  4. IMODIUM [Concomitant]
     Active Substance: LOPERAMIDE HYDROCHLORIDE
  5. PROBIOTIC 10 [Concomitant]
  6. VITAMIN B12 [Suspect]
     Active Substance: CYANOCOBALAMIN
  7. VITAMIN D3 [Concomitant]
     Active Substance: CHOLECALCIFEROL
  8. KRILL OIL [Concomitant]
     Active Substance: DIETARY SUPPLEMENT
  9. BIOTIN [Concomitant]
     Active Substance: BIOTIN
  10. GRAPE EXTRACT [Concomitant]
     Active Substance: WINE GRAPE
  11. POTASSIUM [Concomitant]
     Active Substance: POTASSIUM
  12. SYNTHROID [Concomitant]
     Active Substance: LEVOTHYROXINE SODIUM
  13. ALLEGRA [Concomitant]
     Active Substance: FEXOFENADINE HYDROCHLORIDE
  14. FENOFIBRATE. [Concomitant]
     Active Substance: FENOFIBRATE
  15. CHONDROITIN SULFATE [Concomitant]
     Active Substance: SODIUM CHONDROITIN SULFATE
  16. GREEN TEA EXT [Concomitant]
  17. GLUCOSAMINE HCL [Concomitant]
     Active Substance: GLUCOSAMINE
  18. OLIVE LEAF [Concomitant]
  19. VITAMIN D [Concomitant]
     Active Substance: CHOLECALCIFEROL
  20. PANTOPRAZOLE SODIUM. [Concomitant]
     Active Substance: PANTOPRAZOLE SODIUM
  21. CALCIUM [Concomitant]
     Active Substance: CALCIUM
  22. OMEGA-3 ACIDS [Concomitant]
     Active Substance: OMEGA-3 FATTY ACIDS
  23. LOSARTAN POTASSIUM 25MG TAB AUROBINDO PHARM [Suspect]
     Active Substance: LOSARTAN POTASSIUM
     Indication: HYPERTENSION
     Route: 048
     Dates: start: 20160804, end: 20160825
  24. VITAMIN K [Concomitant]
     Active Substance: PHYTONADIONE

REACTIONS (4)
  - Colitis [None]
  - Fatigue [None]
  - Influenza like illness [None]
  - Condition aggravated [None]

NARRATIVE: CASE EVENT DATE: 20160809
